FAERS Safety Report 8531361-X (Version None)
Quarter: 2012Q3

REPORT INFORMATION
  Report Type: 
  Country: None (occurrence: None)
  Receive Date: 20120723
  Receipt Date: 20120711
  Transmission Date: 20120928
  Serious: Yes (Hospitalization)
  Sender: FDA-Public Use
  Company Number: US-ACTELION-A-NJ2012-62078

PATIENT

DRUGS (4)
  1. REMODULIN [Concomitant]
  2. REVATIO [Concomitant]
  3. COUMADIN [Concomitant]
  4. TRACLEER [Suspect]
     Indication: PULMONARY ARTERIAL HYPERTENSION
     Dosage: UNK
     Route: 048

REACTIONS (6)
  - PYREXIA [None]
  - CONDITION AGGRAVATED [None]
  - VOMITING [None]
  - CHILLS [None]
  - RASH PRURITIC [None]
  - INFUSION SITE CELLULITIS [None]
